FAERS Safety Report 6118758-2 (Version None)
Quarter: 2009Q1

REPORT INFORMATION
  Report Type: 
  Country: None (occurrence: None)
  Receive Date: 20090314
  Receipt Date: 20090227
  Transmission Date: 20090719
  Serious: No
  Sender: FDA-Public Use
  Company Number: US-ABBOTT-09P-163-0559670-00

PATIENT
  Sex: Female
  Weight: 63.56 kg

DRUGS (1)
  1. HUMIRA [Suspect]
     Indication: PSORIASIS
     Dates: start: 20090219

REACTIONS (5)
  - EAR PAIN [None]
  - FATIGUE [None]
  - NASAL POLYPS [None]
  - SINUS CONGESTION [None]
  - TOOTHACHE [None]
